FAERS Safety Report 4903628-5 (Version None)
Quarter: 2006Q1

REPORT INFORMATION
  Report Type: 
  Country: None (occurrence: None)
  Receive Date: 20060203
  Receipt Date: 20060120
  Transmission Date: 20060701
  Serious: Yes (Other)
  Sender: FDA-Public Use
  Company Number: 2006010036

PATIENT
  Age: 48 Year
  Sex: Female

DRUGS (6)
  1. AZELASTINE HCL [Suspect]
     Indication: RHINITIS ALLERGIC
     Dosage: AS REQUIRED, IN
  2. L-THYROXIN (LEVOTHYROXINE) [Concomitant]
  3. NEUTROTOP (CARBAMAZEPINE) [Concomitant]
  4. TEGRETOL LP 400 (CARBAMAZEPINE) [Concomitant]
  5. CETIRIZINE HCL [Concomitant]
  6. ZYRTEC [Concomitant]

REACTIONS (1)
  - EPILEPSY [None]
